FAERS Safety Report 4282115-4 (Version None)
Quarter: 2004Q1

REPORT INFORMATION
  Report Type: 
  Country: None (occurrence: None)
  Receive Date: 20040130
  Receipt Date: 20030731
  Transmission Date: 20041129
  Serious: No
  Sender: FDA-Public Use
  Company Number: US-BRISTOL-MYERS SQUIBB COMPANY-12343026

PATIENT
  Age: 59 Year
  Sex: Female

DRUGS (2)
  1. DESYREL [Suspect]
     Indication: DEPRESSION
     Route: 048
     Dates: start: 20010601
  2. COMBIPATCH [Concomitant]

REACTIONS (1)
  - BLOOD URINE [None]
